FAERS Safety Report 5004712-0 (Version None)
Quarter: 2006Q1

REPORT INFORMATION
  Report Type: 
  Country: None (occurrence: None)
  Receive Date: 20060321
  Receipt Date: 20060112
  Transmission Date: 20060701
  Serious: No
  Sender: FDA-Public Use
  Company Number: 2006US000145

PATIENT
  Age: 76 Year
  Sex: Male

DRUGS (2)
  1. VESICARE [Suspect]
     Indication: BLADDER DISORDER
     Dosage: 5 MG, ORAL
     Route: 048
     Dates: start: 20060106
  2. LIPITOR [Concomitant]

REACTIONS (1)
  - MYALGIA [None]
